FAERS Safety Report 8369236-1 (Version None)
Quarter: 2012Q2

REPORT INFORMATION
  Report Type: 
  Country: None (occurrence: None)
  Receive Date: 20120517
  Receipt Date: 20120517
  Transmission Date: 20120825
  Serious: Yes (Disabling)
  Sender: FDA-Public Use
  Company Number: None

PATIENT
  Sex: Male
  Weight: 90.9 kg

DRUGS (1)
  1. PROPECIA [Suspect]
     Indication: ALOPECIA
     Dosage: 1MG DAILY ORAL
     Route: 048
     Dates: start: 19980101, end: 20080101

REACTIONS (8)
  - ERECTILE DYSFUNCTION [None]
  - IRRITABILITY [None]
  - MOOD ALTERED [None]
  - PERSONALITY CHANGE [None]
  - SEXUAL DYSFUNCTION [None]
  - LOSS OF LIBIDO [None]
  - EJACULATION DISORDER [None]
  - PENILE CURVATURE [None]
